FAERS Safety Report 10150339 (Version 2)
Quarter: 2014Q2

REPORT INFORMATION
  Report Type: Spontaneous
  Country: DE (occurrence: DE)
  Receive Date: 20140502
  Receipt Date: 20140516
  Transmission Date: 20141212
  Serious: Yes (Death, Other)
  Sender: FDA-Public Use
  Company Number: DE-GILEAD-2014-0101449

PATIENT
  Age: 83 Year
  Sex: Female
  Weight: 54 kg

DRUGS (2)
  1. AMBRISENTAN [Suspect]
     Indication: PULMONARY ARTERIAL HYPERTENSION
     Dosage: 5 MG, UNK
     Route: 048
  2. AMBRISENTAN [Suspect]
     Dosage: 10 MG, QD
     Route: 048

REACTIONS (3)
  - Urosepsis [Fatal]
  - Renal failure acute [Fatal]
  - Acute myocardial infarction [Fatal]
